FAERS Safety Report 6156020-2 (Version None)
Quarter: 2009Q2

REPORT INFORMATION
  Report Type: 
  Country: None (occurrence: None)
  Receive Date: 20090413
  Receipt Date: 20090327
  Transmission Date: 20091009
  Serious: Yes (Other)
  Sender: FDA-Public Use
  Company Number: A-NJ2008-23250

PATIENT
  Age: 53 Year
  Sex: Female
  Weight: 117.9 kg

DRUGS (11)
  1. VENTAVIS [Suspect]
     Indication: PULMONARY ARTERIAL HYPERTENSION
     Dosage: 5 UG, 6 X DAILY, RESPIRATORY
     Route: 055
     Dates: start: 20080912, end: 20090127
  2. REVATIO [Concomitant]
  3. NORVASC [Concomitant]
  4. FUROSEMIDE [Concomitant]
  5. PREDNISONE TAB [Concomitant]
  6. ZYRTEC [Concomitant]
  7. MUCONEX (ACETYLCYSTEINE) [Concomitant]
  8. THEOPHYLLINE [Concomitant]
  9. ALBUTEROL [Concomitant]
  10. SPIRIVA [Concomitant]
  11. ZAROXOLYN [Concomitant]

REACTIONS (9)
  - CONDITION AGGRAVATED [None]
  - DEPRESSION [None]
  - DYSPNOEA [None]
  - FEELING ABNORMAL [None]
  - HEADACHE [None]
  - MUSCLE SPASMS [None]
  - OEDEMA PERIPHERAL [None]
  - PAIN IN EXTREMITY [None]
  - THINKING ABNORMAL [None]
